FAERS Safety Report 13111442 (Version 1)
Quarter: 2017Q1

REPORT INFORMATION
  Report Type: Spontaneous
  Country: FR (occurrence: FR)
  Receive Date: 20170112
  Receipt Date: 20170112
  Transmission Date: 20170428
  Serious: Yes (Hospitalization, Other)
  Sender: FDA-Public Use
  Company Number: FR-BRISTOL-MYERS SQUIBB COMPANY-BMS-2017-000524

PATIENT
  Age: 64 Year
  Sex: Male

DRUGS (1)
  1. COUMADINE [Suspect]
     Active Substance: WARFARIN SODIUM
     Indication: PRODUCT USED FOR UNKNOWN INDICATION
     Dosage: UNK
     Route: 048
     Dates: end: 20140110

REACTIONS (6)
  - Melaena [Recovered/Resolved]
  - Haemoglobin decreased [Recovered/Resolved]
  - Rectal haemorrhage [Recovered/Resolved]
  - Diverticulum [Unknown]
  - Transfusion [Unknown]
  - Large intestine polyp [Unknown]

NARRATIVE: CASE EVENT DATE: 20140110
